FAERS Safety Report 15687837 (Version 1)
Quarter: 2018Q4

REPORT INFORMATION
  Report Type: Spontaneous
  Country: US (occurrence: US)
  Receive Date: 20181205
  Receipt Date: 20181205
  Transmission Date: 20190205
  Serious: No
  Sender: FDA-Public Use
  Company Number: US-ROCHE-2031173

PATIENT
  Age: 14 Month
  Sex: Male
  Weight: 10 kg

DRUGS (3)
  1. PHENOBARBITAL. [Concomitant]
     Active Substance: PHENOBARBITAL
     Indication: STATUS EPILEPTICUS
  2. VALIUM [Suspect]
     Active Substance: DIAZEPAM
     Indication: STATUS EPILEPTICUS
     Route: 054
  3. AMOXICILLIN. [Concomitant]
     Active Substance: AMOXICILLIN
     Indication: STATUS EPILEPTICUS

REACTIONS (3)
  - Product use issue [Unknown]
  - No adverse event [Unknown]
  - Off label use [Unknown]
